FAERS Safety Report 13248386 (Version 1)
Quarter: 2017Q1

REPORT INFORMATION
  Report Type: Spontaneous
  Country: US (occurrence: US)
  Receive Date: 20170218
  Receipt Date: 20170218
  Transmission Date: 20170428
  Serious: No
  Sender: FDA-Public Use
  Company Number: US-ALLERGAN-1662465US

PATIENT
  Sex: Female
  Weight: 50.79 kg

DRUGS (4)
  1. RESTASIS [Suspect]
     Active Substance: CYCLOSPORINE
     Indication: DRY EYE
     Dosage: 2 GTT, BID
     Route: 047
  2. COSAMIN DS [Concomitant]
     Indication: OSTEOARTHRITIS
     Dosage: UNK
  3. MSM [Concomitant]
     Active Substance: DIMETHYL SULFONE
     Indication: OSTEOARTHRITIS
     Dosage: UNK
  4. BOSTON SCIENTIFIC PROSTHETIC LENS [Concomitant]
     Indication: DRY EYE

REACTIONS (5)
  - Photophobia [Recovered/Resolved]
  - Eye irritation [Recovered/Resolved]
  - Foreign body sensation in eyes [Recovered/Resolved]
  - Eye pain [Recovered/Resolved]
  - Drug ineffective [Unknown]
